FAERS Safety Report 9603048 (Version 2)
Quarter: 2013Q4

REPORT INFORMATION
  Report Type: Spontaneous
  Country: US (occurrence: US)
  Receive Date: 20131007
  Receipt Date: 20131022
  Transmission Date: 20140711
  Serious: Yes (Other)
  Sender: FDA-Public Use
  Company Number: US-TEVA-435715USA

PATIENT
  Sex: Male

DRUGS (3)
  1. VENLAFAXINE [Suspect]
     Indication: ANXIETY
     Dosage: 75 MG ONCE DAILY AND 35.5 MG ONCE DAILY
  2. THYROID PILL [Concomitant]
     Indication: HYPOTHYROIDISM
  3. CROHN^S DISEASE PILL [Concomitant]
     Indication: CROHN^S DISEASE

REACTIONS (3)
  - Blood creatine increased [Unknown]
  - Glomerular filtration rate decreased [Unknown]
  - Dizziness [Unknown]
